FAERS Safety Report 20134787 (Version 1)
Quarter: 2021Q4

REPORT INFORMATION
  Report Type: Spontaneous
  Country: US (occurrence: None)
  Receive Date: 20211130
  Receipt Date: 20211130
  Transmission Date: 20220303
  Serious: No
  Sender: FDA-Public Use
  Company Number: None

PATIENT
  Sex: Female

DRUGS (1)
  1. XELJANZ [Suspect]
     Active Substance: TOFACITINIB CITRATE
     Indication: Psoriatic arthropathy
     Dosage: FREQUENCY : TWICE A DAY;?
     Route: 048
     Dates: start: 202107

REACTIONS (4)
  - Drug ineffective [None]
  - Migraine [None]
  - Paraesthesia [None]
  - Hypoaesthesia [None]
